FAERS Safety Report 8250035-6 (Version None)
Quarter: 2012Q2

REPORT INFORMATION
  Report Type: 
  Country: None (occurrence: None)
  Receive Date: 20120402
  Receipt Date: 20120323
  Transmission Date: 20120825
  Serious: Yes (Other)
  Sender: FDA-Public Use
  Company Number: US-ELI_LILLY_AND_COMPANY-US201202004823

PATIENT
  Sex: Female

DRUGS (3)
  1. FORTEO [Suspect]
     Indication: OSTEOPOROSIS
     Dosage: 20 UG, QD
     Route: 065
     Dates: start: 20111102, end: 20111225
  2. FORTEO [Suspect]
     Dosage: 20 UG, QD
     Route: 065
     Dates: start: 20120210, end: 20120220
  3. AMLODIPINE BESYLATE [Concomitant]
     Indication: HYPERTENSION
     Dosage: 15 MG, QD

REACTIONS (16)
  - ARTHRALGIA [None]
  - FEAR [None]
  - DIZZINESS [None]
  - FLATULENCE [None]
  - DRUG DOSE OMISSION [None]
  - BREAST CANCER STAGE I [None]
  - ASTHENIA [None]
  - ANXIETY [None]
  - HEART RATE INCREASED [None]
  - NAUSEA [None]
  - SOMNOLENCE [None]
  - MALAISE [None]
  - PAIN [None]
  - INTENTIONAL DRUG MISUSE [None]
  - FATIGUE [None]
  - ABDOMINAL PAIN UPPER [None]
